FAERS Safety Report 4755955-2 (Version None)
Quarter: 2005Q3

REPORT INFORMATION
  Report Type: 
  Country: None (occurrence: None)
  Receive Date: 20050826
  Receipt Date: 20050211
  Transmission Date: 20060218
  Serious: Yes (Hospitalization, Other)
  Sender: FDA-Public Use
  Company Number: USA-2003-0008378

PATIENT
  Age: 17 Year
  Sex: Male

DRUGS (6)
  1. OXYCONTIN [Suspect]
  2. VALIUM [Suspect]
  3. XANAX [Suspect]
  4. VICODIN [Suspect]
  5. PERCOCET [Suspect]
  6. ALCOHOL (ETHANOL) [Suspect]

REACTIONS (6)
  - DRUG ABUSER [None]
  - DRUG DEPENDENCE [None]
  - EUPHORIC MOOD [None]
  - OVERDOSE [None]
  - POLYSUBSTANCE ABUSE [None]
  - SUICIDE ATTEMPT [None]
